FAERS Safety Report 16634295 (Version 1)
Quarter: 2019Q3

REPORT INFORMATION
  Report Type: Report from Study
  Country: GB (occurrence: GB)
  Receive Date: 20190726
  Receipt Date: 20190726
  Transmission Date: 20191004
  Serious: Yes (Hospitalization, Other)
  Sender: FDA-Public Use
  Company Number: GB-TEVA-2019-GB-1083283

PATIENT
  Sex: Male

DRUGS (1)
  1. COPAXONE [Suspect]
     Active Substance: GLATIRAMER ACETATE
     Dosage: 20 MILLIGRAM/MILLILITERS DAILY; PRE-FILLED SYRINGE;
     Route: 058
     Dates: start: 20170714

REACTIONS (5)
  - Loss of consciousness [Unknown]
  - Hyperhidrosis [Unknown]
  - Flushing [Unknown]
  - Dyspnoea [Unknown]
  - Adverse event [Unknown]
